FAERS Safety Report 13449657 (Version 16)
Quarter: 2019Q2

REPORT INFORMATION
  Report Type: Spontaneous
  Country: US (occurrence: US)
  Receive Date: 20170417
  Receipt Date: 20190603
  Transmission Date: 20190711
  Serious: Yes (Hospitalization, Other)
  Sender: FDA-Public Use
  Company Number: US-ACTELION-A-US2017-152226

PATIENT
  Age: 21 Year
  Sex: Female
  Weight: 59.86 kg

DRUGS (10)
  1. DILTIAZEM. [Concomitant]
     Active Substance: DILTIAZEM
  2. OPSUMIT [Suspect]
     Active Substance: MACITENTAN
     Indication: PULMONARY ARTERIAL HYPERTENSION
     Dosage: 10 MG, QD
     Route: 048
     Dates: start: 20170411
  3. ADCIRCA [Concomitant]
     Active Substance: TADALAFIL
     Dosage: 20 MG, UNK
  4. VELETRI [Suspect]
     Active Substance: EPOPROSTENOL
     Indication: PULMONARY ARTERIAL HYPERTENSION
     Dosage: 14 NG/KG/MIN
     Route: 042
  5. VELETRI [Suspect]
     Active Substance: EPOPROSTENOL
     Dosage: 15 NG/KG, PER MIN
     Route: 042
  6. ORENITRAM [Concomitant]
     Active Substance: TREPROSTINIL
     Dosage: 2.125 MG, TID
  7. VELETRI [Suspect]
     Active Substance: EPOPROSTENOL
     Dosage: 14 NG/KG/MIN
     Route: 042
  8. VELETRI [Suspect]
     Active Substance: EPOPROSTENOL
     Dosage: 3.5 NG/KG, PER MIN
     Route: 042
     Dates: start: 201701
  9. JUNEL [Concomitant]
     Active Substance: ETHINYL ESTRADIOL\NORETHINDRONE ACETATE
  10. LEVOTHYROXIN [Concomitant]
     Active Substance: LEVOTHYROXINE
     Dosage: 88 MCG, UNK

REACTIONS (30)
  - Pain [Unknown]
  - Pain in jaw [Unknown]
  - Dyspnoea exertional [Unknown]
  - Echocardiogram abnormal [Unknown]
  - Glossodynia [Unknown]
  - Nasal congestion [Unknown]
  - Unevaluable event [Unknown]
  - Palpitations [Unknown]
  - Device leakage [Recovered/Resolved]
  - Device damage [Recovered/Resolved]
  - Taste disorder [Unknown]
  - Catheter management [Unknown]
  - Blindness transient [Unknown]
  - Gastrooesophageal reflux disease [Unknown]
  - Headache [Unknown]
  - Diarrhoea [Unknown]
  - Erythema [Unknown]
  - Pain of skin [Unknown]
  - Chest pain [Recovering/Resolving]
  - Catheter site pain [Unknown]
  - Device related infection [Recovered/Resolved]
  - Pulmonary arterial pressure increased [Unknown]
  - Nausea [Unknown]
  - Abdominal discomfort [Unknown]
  - Dyspnoea [Unknown]
  - Myalgia [Unknown]
  - Muscle spasms [Unknown]
  - Catheter site irritation [Unknown]
  - Swelling [Unknown]
  - Catheter site discharge [Unknown]

NARRATIVE: CASE EVENT DATE: 201712
